FAERS Safety Report 12640724 (Version 2)
Quarter: 2017Q1

REPORT INFORMATION
  Report Type: Spontaneous
  Country: JP (occurrence: JP)
  Receive Date: 20160810
  Receipt Date: 20170110
  Transmission Date: 20170428
  Serious: Yes (Other)
  Sender: FDA-Public Use
  Company Number: JP-TEVA-682408ISR

PATIENT
  Age: 66 Year
  Sex: Male
  Weight: 54 kg

DRUGS (21)
  1. E-FEN BUCCAL [Suspect]
     Active Substance: FENTANYL CITRATE
     Dosage: 100 MICROGRAM DAILY;
     Route: 002
     Dates: start: 20141026, end: 20141105
  2. TAPENTADOL HYDROCHLORIDE [Concomitant]
     Active Substance: TAPENTADOL HYDROCHLORIDE
     Dosage: 50 MILLIGRAM DAILY;
     Route: 048
     Dates: start: 20141112, end: 20141125
  3. BIO-THREE [Concomitant]
     Active Substance: HERBALS
     Indication: CONSTIPATION
     Dosage: 3 DOSAGE FORMS DAILY;
     Route: 048
  4. E-FEN BUCCAL [Suspect]
     Active Substance: FENTANYL CITRATE
     Dosage: 100MICROG-300MICROG
     Route: 002
     Dates: start: 20141016, end: 20141025
  5. E-FEN BUCCAL [Suspect]
     Active Substance: FENTANYL CITRATE
     Dosage: 100 MICROGRAM DAILY;
     Route: 002
     Dates: start: 20141112, end: 20141212
  6. TAPENTADOL HYDROCHLORIDE [Concomitant]
     Active Substance: TAPENTADOL HYDROCHLORIDE
     Indication: CANCER PAIN
     Dosage: 150 MILLIGRAM DAILY;
     Route: 048
     Dates: start: 20141008, end: 20141109
  7. LOXOPROFEN SODIUM HYDRATE [Concomitant]
     Active Substance: LOXOPROFEN SODIUM DIHYDRATE
     Indication: CANCER PAIN
     Dosage: 120 MILLIGRAM DAILY;
     Route: 048
     Dates: start: 20141028, end: 20150122
  8. MAGMITT [Concomitant]
     Active Substance: MAGNESIUM OXIDE
     Indication: CONSTIPATION
     Route: 048
  9. FENTOS [Concomitant]
     Active Substance: FENTANYL
     Dosage: 4 MILLIGRAM DAILY;
     Route: 062
     Dates: start: 20141125, end: 20150122
  10. OXINORM [Concomitant]
     Active Substance: OXYCODONE HYDROCHLORIDE
     Indication: BREAKTHROUGH PAIN
     Route: 048
     Dates: start: 20141014, end: 20150122
  11. E-FEN BUCCAL [Suspect]
     Active Substance: FENTANYL CITRATE
     Indication: BREAKTHROUGH PAIN
     Dosage: 200 MICROGRAM DAILY;
     Route: 002
     Dates: start: 20141015, end: 20141015
  12. VECTIBIX [Concomitant]
     Active Substance: PANITUMUMAB
     Indication: CHEMOTHERAPY
     Route: 065
     Dates: start: 20141028, end: 20141110
  13. MAGNESIUM OXIDE. [Concomitant]
     Active Substance: MAGNESIUM OXIDE
     Indication: CONSTIPATION
     Dosage: 1500 MILLIGRAM DAILY;
     Route: 048
     Dates: start: 20141211, end: 20150122
  14. PARIET [Concomitant]
     Active Substance: RABEPRAZOLE SODIUM
     Indication: DUODENAL ULCER
     Dosage: 10 MILLIGRAM DAILY;
     Route: 048
  15. TAPENTADOL HYDROCHLORIDE [Concomitant]
     Active Substance: TAPENTADOL HYDROCHLORIDE
     Dosage: 100 MILLIGRAM DAILY;
     Route: 048
     Dates: start: 20141110, end: 20141111
  16. ALLEGRA [Concomitant]
     Active Substance: FEXOFENADINE HYDROCHLORIDE
     Indication: HYPERSENSITIVITY
     Dosage: 60 MILLIGRAM DAILY;
     Route: 048
  17. FENTOS [Concomitant]
     Active Substance: FENTANYL
     Indication: CANCER PAIN
     Dosage: 1 MILLIGRAM DAILY;
     Route: 062
     Dates: start: 20141106, end: 20141109
  18. SANDOSTATIN [Concomitant]
     Active Substance: OCTREOTIDE ACETATE
     Indication: PALLIATIVE CARE
     Dosage: 300 MICROGRAM DAILY;
     Route: 058
     Dates: start: 20141216
  19. AMLODIN OD [Concomitant]
     Active Substance: AMLODIPINE BESYLATE
     Indication: HYPERTENSION
     Dosage: 5 MILLIGRAM DAILY;
     Route: 048
  20. FENTOS [Concomitant]
     Active Substance: FENTANYL
     Dosage: 2 MILLIGRAM DAILY;
     Route: 062
     Dates: start: 20141110, end: 20141124
  21. SHOKENCHUTO [Concomitant]
     Indication: PALLIATIVE CARE
     Dosage: 3 DOSAGE FORMS DAILY;
     Route: 048
     Dates: start: 20141126, end: 20141209

REACTIONS (2)
  - Intestinal obstruction [Unknown]
  - Constipation [Unknown]

NARRATIVE: CASE EVENT DATE: 20141211
